FAERS Safety Report 9858460 (Version 1)
Quarter: 2014Q1

REPORT INFORMATION
  Report Type: Spontaneous
  Country: US (occurrence: None)
  Receive Date: 20140130
  Receipt Date: 20140130
  Transmission Date: 20141002
  Serious: Yes (Hospitalization)
  Sender: FDA-Public Use
  Company Number: None

PATIENT
  Age: 71 Year
  Sex: Female
  Weight: 71.94 kg

DRUGS (2)
  1. CARBOPLATIN [Suspect]
  2. PACLITAXEL [Suspect]

REACTIONS (4)
  - Nausea [None]
  - Vomiting [None]
  - Tremor [None]
  - Hypokalaemia [None]
